FAERS Safety Report 21593730 (Version 1)
Quarter: 2022Q4

REPORT INFORMATION
  Report Type: Spontaneous
  Country: US (occurrence: None)
  Receive Date: 20221114
  Receipt Date: 20221114
  Transmission Date: 20230112
  Serious: Yes (Death)
  Sender: FDA-Public Use
  Company Number: None

PATIENT
  Age: 79 Year
  Sex: Female
  Weight: 70.08 kg

DRUGS (18)
  1. IBRANCE [Suspect]
     Active Substance: PALBOCICLIB
     Indication: Breast cancer female
     Dosage: OTHER FREQUENCY : 21D ON 7 D OFF;?
     Route: 048
     Dates: start: 202202
  2. ANASTROZOLE [Concomitant]
  3. ATENOLOL [Concomitant]
     Active Substance: ATENOLOL
  4. CALCIUM CITRATE [Concomitant]
     Active Substance: CALCIUM CITRATE
  5. ESTER-C [Concomitant]
  6. FISH OIL [Concomitant]
  7. VITAMIN B50 [Concomitant]
  8. LEVOTHYROXINE [Concomitant]
  9. LORATADINE [Concomitant]
  10. MAGOX [Concomitant]
  11. MELATONIN [Concomitant]
     Active Substance: MELATONIN
  12. OCUVITE EYE + MULTI [Concomitant]
  13. MELATONIN [Concomitant]
     Active Substance: MELATONIN
  14. PEPCID [Concomitant]
  15. ROBITUSSIN [Concomitant]
  16. SAVAYSA [Concomitant]
  17. SENNA [Concomitant]
  18. TESSALON [Concomitant]

REACTIONS (2)
  - Pneumonitis [None]
  - Pneumonia [None]

NARRATIVE: CASE EVENT DATE: 20221102
